FAERS Safety Report 4537887-8 (Version None)
Quarter: 2004Q4

REPORT INFORMATION
  Report Type: 
  Country: None (occurrence: None)
  Receive Date: 20041224
  Receipt Date: 20041126
  Transmission Date: 20050328
  Serious: Yes (Hospitalization)
  Sender: FDA-Public Use
  Company Number: JP-MERCK-0412USA02540

PATIENT
  Age: 51 Year
  Sex: Male

DRUGS (3)
  1. DECADRON [Suspect]
     Indication: AMYLOIDOSIS
     Route: 048
     Dates: start: 20000401
  2. ADRIACIN [Suspect]
     Indication: AMYLOIDOSIS
     Route: 065
     Dates: start: 20000401
  3. ONCOVIN [Suspect]
     Indication: AMYLOIDOSIS
     Route: 065
     Dates: start: 20000401

REACTIONS (1)
  - PNEUMOCYSTIS CARINII PNEUMONIA [None]
